FAERS Safety Report 15159920 (Version 1)
Quarter: 2018Q3

REPORT INFORMATION
  Report Type: Spontaneous
  Country: CH (occurrence: CH)
  Receive Date: 20180718
  Receipt Date: 20180718
  Transmission Date: 20181010
  Serious: Yes (Other)
  Sender: FDA-Public Use
  Company Number: CH-SA-2018SA191896

PATIENT
  Sex: Male

DRUGS (5)
  1. XELODA [Suspect]
     Active Substance: CAPECITABINE
     Dosage: DOSAGGIO NON NOTO
     Route: 041
     Dates: start: 20170906, end: 20180226
  2. ASPIRIN CARDIO [Concomitant]
     Active Substance: ASPIRIN
     Dosage: 100 MG, QD
     Route: 048
  3. BELOC ZOK [Concomitant]
     Active Substance: METOPROLOL SUCCINATE
     Dosage: 25 MG, BID
     Route: 048
  4. ELOXATIN [Suspect]
     Active Substance: OXALIPLATIN
     Dosage: DOSAGGIO NON NOTO
     Route: 041
     Dates: start: 20170906, end: 20180226
  5. ELTROXIN LF [Concomitant]
     Dosage: UNK
     Route: 048

REACTIONS (1)
  - Meningitis aseptic [Recovering/Resolving]

NARRATIVE: CASE EVENT DATE: 2018
